FAERS Safety Report 4681678-4 (Version None)
Quarter: 2005Q2

REPORT INFORMATION
  Report Type: 
  Country: None (occurrence: None)
  Receive Date: 20050603
  Receipt Date: 20050214
  Transmission Date: 20051028
  Serious: Yes (Hospitalization, Disabling, Other)
  Sender: FDA-Public Use
  Company Number: US-MERCK-0502USA01890

PATIENT
  Age: 46 Year
  Sex: Female
  Weight: 159 kg

DRUGS (12)
  1. VIOXX [Suspect]
     Indication: OSTEOARTHRITIS
     Route: 048
     Dates: start: 20000101, end: 20020701
  2. SYNTHROID [Concomitant]
     Route: 065
  3. LOTENSIN [Concomitant]
     Route: 065
  4. PREMPRO (PREMARIN;CYCRIN 14/14) [Concomitant]
     Route: 065
  5. SARAFEM [Concomitant]
     Route: 065
  6. DETROL [Concomitant]
     Route: 065
  7. TIAZAC [Concomitant]
     Route: 065
  8. HYDROCHLOROTHIAZIDE AND TRIAMTERENE [Concomitant]
     Route: 065
  9. HYDROXYZINE HYDROCHLORIDE [Concomitant]
     Route: 065
  10. LORAZEPAM [Concomitant]
     Route: 065
  11. AMBIEN [Concomitant]
     Route: 065
  12. TOPROL-XL [Concomitant]
     Route: 065

REACTIONS (17)
  - AMNESIA [None]
  - ANXIETY [None]
  - CEREBROVASCULAR ACCIDENT [None]
  - CHOLECYSTECTOMY [None]
  - DEEP VEIN THROMBOSIS [None]
  - DEPRESSION [None]
  - DIABETES MELLITUS [None]
  - DYSPEPSIA [None]
  - DYSPNOEA [None]
  - GASTROOESOPHAGEAL REFLUX DISEASE [None]
  - NAUSEA [None]
  - OEDEMA PERIPHERAL [None]
  - PAIN [None]
  - PULMONARY EMBOLISM [None]
  - SLEEP APNOEA SYNDROME [None]
  - SPEECH DISORDER [None]
  - TRANSIENT ISCHAEMIC ATTACK [None]
